FAERS Safety Report 9255871 (Version 1)
Quarter: 2013Q2

REPORT INFORMATION
  Report Type: Spontaneous
  Country: US (occurrence: US)
  Receive Date: 20130425
  Receipt Date: 20130425
  Transmission Date: 20140414
  Serious: Yes (Hospitalization, Other)
  Sender: FDA-Public Use
  Company Number: US-ELI_LILLY_AND_COMPANY-US201304007169

PATIENT
  Age: 40 Year
  Sex: Male

DRUGS (2)
  1. HUMALOG LISPRO [Suspect]
     Dosage: UNK
  2. COUMADIN [Concomitant]

REACTIONS (3)
  - Hyperglycaemia [Recovered/Resolved]
  - Skin ulcer [Unknown]
  - Anticoagulation drug level above therapeutic [Unknown]
